FAERS Safety Report 5064995-8 (Version None)
Quarter: 2006Q3

REPORT INFORMATION
  Report Type: 
  Country: None (occurrence: None)
  Receive Date: 20060728
  Receipt Date: 20060718
  Transmission Date: 20061208
  Serious: Yes (Hospitalization)
  Sender: FDA-Public Use
  Company Number: JP-ABBOTT-06P-087-0338474-00

PATIENT
  Sex: Female
  Weight: 50 kg

DRUGS (15)
  1. CLARITHROMYCIN [Suspect]
     Indication: NASOPHARYNGITIS
     Route: 048
     Dates: start: 20051128, end: 20051207
  2. PERINDOPRIL [Suspect]
     Indication: HYPERTENSION
     Route: 048
     Dates: start: 20050909, end: 20051209
  3. AMBROXOL HYDROCHLORIDE [Suspect]
     Indication: NASOPHARYNGITIS
     Dates: start: 20051117
  4. DIMEMORFAN PHOSPHATE [Suspect]
     Indication: NASOPHARYNGITIS
     Route: 048
     Dates: start: 20051117
  5. AZELASTINE HCL [Suspect]
     Indication: NASOPHARYNGITIS
     Dates: start: 20051128, end: 20051207
  6. DAYASPIRINA [Concomitant]
     Indication: DRUG USE FOR UNKNOWN INDICATION
     Dates: start: 20050721, end: 20051209
  7. DAYASPIRINA [Concomitant]
     Dates: start: 20050721, end: 20051209
  8. DAYASPIRINA [Concomitant]
     Dates: start: 20051222
  9. PRAVASTATIN SODIUM [Concomitant]
     Indication: DRUG USE FOR UNKNOWN INDICATION
     Dates: start: 20050721, end: 20051209
  10. PRAVASTATIN SODIUM [Concomitant]
     Dates: start: 20051222
  11. UBIDECARENONE [Concomitant]
     Indication: DRUG USE FOR UNKNOWN INDICATION
     Dates: start: 20050721
  12. TRICHLORMETHIAZIDE [Concomitant]
     Indication: DRUG USE FOR UNKNOWN INDICATION
     Dates: start: 20050927, end: 20051209
  13. WARFARIN SODIUM [Concomitant]
     Indication: DRUG USE FOR UNKNOWN INDICATION
     Dates: start: 20050721, end: 20051209
  14. WARFARIN SODIUM [Concomitant]
     Dates: start: 20051222
  15. OLMETEC [Concomitant]
     Indication: DRUG USE FOR UNKNOWN INDICATION
     Dates: start: 20060203

REACTIONS (2)
  - HAEMOPTYSIS [None]
  - THROMBOCYTOPENIA [None]
